FAERS Safety Report 6734079-9 (Version None)
Quarter: 2010Q2

REPORT INFORMATION
  Report Type: 
  Country: None (occurrence: None)
  Receive Date: 20100518
  Receipt Date: 20100505
  Transmission Date: 20101027
  Serious: Yes (Hospitalization)
  Sender: FDA-Public Use
  Company Number: 231394K08USA

PATIENT
  Age: 43 Year
  Sex: Female

DRUGS (3)
  1. REBIF [Suspect]
     Indication: MULTIPLE SCLEROSIS
     Dosage: 44 MCG. 3 OM 1 WK, SUBCUTANEOUS
     Route: 058
     Dates: start: 20080407
  2. VICODIN [Concomitant]
  3. TOPAMAX [Concomitant]

REACTIONS (2)
  - HAEMOGLOBIN DECREASED [None]
  - HEADACHE [None]
